FAERS Safety Report 12631653 (Version 2)
Quarter: 2016Q3

REPORT INFORMATION
  Report Type: Spontaneous
  Country: US (occurrence: US)
  Receive Date: 20160808
  Receipt Date: 20160808
  Transmission Date: 20161109
  Serious: No
  Sender: FDA-Public Use
  Company Number: US-BEH-2015055177

PATIENT
  Sex: Female
  Weight: 63 kg

DRUGS (29)
  1. HIZENTRA [Suspect]
     Active Substance: HUMAN IMMUNOGLOBULIN G
     Indication: HYPOGAMMAGLOBULINAEMIA
     Route: 058
  2. AMITRIPTYLINE [Concomitant]
     Active Substance: AMITRIPTYLINE
  3. LIDOCAINE. [Concomitant]
     Active Substance: LIDOCAINE
  4. ALOE [Concomitant]
     Active Substance: ALOE
  5. ADVAIR HFA [Concomitant]
     Active Substance: FLUTICASONE PROPIONATE\SALMETEROL XINAFOATE
  6. SUMATRIPTAN. [Concomitant]
     Active Substance: SUMATRIPTAN
  7. THEOCHRON [Concomitant]
     Active Substance: THEOPHYLLINE ANHYDROUS
  8. IPRATROPIUM [Concomitant]
     Active Substance: IPRATROPIUM
  9. HYOSCYAMINE. [Concomitant]
     Active Substance: HYOSCYAMINE
  10. NORCO [Concomitant]
     Active Substance: ACETAMINOPHEN\HYDROCODONE BITARTRATE
  11. HYDROCORTISONE. [Concomitant]
     Active Substance: HYDROCORTISONE
  12. NYSTATIN. [Concomitant]
     Active Substance: NYSTATIN
  13. IBUPROFEN. [Concomitant]
     Active Substance: IBUPROFEN
  14. MUCINEX [Concomitant]
     Active Substance: GUAIFENESIN
  15. LIDOCAINE/PRILOCAINE [Concomitant]
     Active Substance: LIDOCAINE\PRILOCAINE
  16. EPIPEN [Concomitant]
     Active Substance: EPINEPHRINE
  17. CYPROHEPTADINE. [Concomitant]
     Active Substance: CYPROHEPTADINE
  18. TRIAMCINOLONE [Concomitant]
     Active Substance: TRIAMCINOLONE
  19. ACETAMINOPHEN. [Concomitant]
     Active Substance: ACETAMINOPHEN
  20. BUDESONIDE. [Concomitant]
     Active Substance: BUDESONIDE
  21. BRIMONIDINE [Concomitant]
     Active Substance: BRIMONIDINE TARTRATE
  22. HIZENTRA [Suspect]
     Active Substance: HUMAN IMMUNOGLOBULIN G
     Indication: HYPOGAMMAGLOBULINAEMIA
     Route: 058
  23. BYSTOLIC [Concomitant]
     Active Substance: NEBIVOLOL HYDROCHLORIDE
  24. COLCRYS [Concomitant]
     Active Substance: COLCHICINE
  25. HIZENTRA [Suspect]
     Active Substance: HUMAN IMMUNOGLOBULIN G
     Indication: IMMUNODEFICIENCY COMMON VARIABLE
     Route: 058
  26. DIPHENHYDRAMINE. [Concomitant]
     Active Substance: DIPHENHYDRAMINE
  27. XOPENEX [Concomitant]
     Active Substance: LEVALBUTEROL HYDROCHLORIDE
  28. LYRICA [Concomitant]
     Active Substance: PREGABALIN
  29. CLONIDINE. [Concomitant]
     Active Substance: CLONIDINE

REACTIONS (1)
  - Nasopharyngitis [Unknown]
